FAERS Safety Report 7648046-4 (Version None)
Quarter: 2011Q3

REPORT INFORMATION
  Report Type: 
  Country: None (occurrence: None)
  Receive Date: 20110801
  Receipt Date: 20110721
  Transmission Date: 20111222
  Serious: Yes (Hospitalization)
  Sender: FDA-Public Use
  Company Number: SE-JNJFOC-20110606595

PATIENT
  Sex: Female

DRUGS (10)
  1. GLYTRIN [Concomitant]
  2. IBUPROFEN [Suspect]
     Indication: PAIN
     Route: 048
     Dates: start: 20110201, end: 20110401
  3. METOPROLOL TARTRATE [Concomitant]
  4. BEHEPAN [Concomitant]
  5. NITRAZEPAM [Concomitant]
  6. ENALAPRIL MALEATE [Concomitant]
  7. ALVEDON [Concomitant]
     Indication: PAIN
  8. FUROSEMIDE [Concomitant]
  9. SIMVASTATIN [Concomitant]
  10. ASPIRIN [Concomitant]

REACTIONS (3)
  - NORMOCHROMIC NORMOCYTIC ANAEMIA [None]
  - CARDIAC FAILURE [None]
  - PNEUMOCOCCAL INFECTION [None]
